FAERS Safety Report 23950770 (Version 1)
Quarter: 2024Q2

REPORT INFORMATION
  Report Type: Report from Study
  Country: US (occurrence: US)
  Receive Date: 20240607
  Receipt Date: 20240607
  Transmission Date: 20240716
  Serious: No
  Sender: FDA-Public Use
  Company Number: US-SPRINGWORKS THERAPEUTICS-SW-001466

PATIENT
  Sex: Female

DRUGS (1)
  1. NIROGACESTAT [Suspect]
     Active Substance: NIROGACESTAT
     Indication: Desmoid tumour
     Dosage: 150 MILLIGRAM EVERY 12 HOURS
     Route: 048
     Dates: start: 20240306

REACTIONS (4)
  - Night sweats [Unknown]
  - Vomiting [Unknown]
  - Influenza like illness [Unknown]
  - Product dose omission issue [Unknown]
